FAERS Safety Report 6460726-5 (Version None)
Quarter: 2009Q4

REPORT INFORMATION
  Report Type: 
  Country: None (occurrence: None)
  Receive Date: 20091130
  Receipt Date: 20091118
  Transmission Date: 20100525
  Serious: Yes (Hospitalization)
  Sender: FDA-Public Use
  Company Number: JP-ASTRAZENECA-2009SE27559

PATIENT
  Age: 54 Year
  Sex: Female

DRUGS (3)
  1. DIPRIVAN [Suspect]
     Indication: GENERAL ANAESTHESIA
     Route: 042
     Dates: start: 20091118
  2. FENTANYL CITRATE [Suspect]
     Route: 042
     Dates: start: 20091118, end: 20091118
  3. ROCURONIUM BROMIDE [Suspect]
     Route: 042
     Dates: start: 20091118, end: 20091118

REACTIONS (1)
  - ANAPHYLACTIC SHOCK [None]
